FAERS Safety Report 14860903 (Version 1)
Quarter: 2018Q2

REPORT INFORMATION
  Report Type: Spontaneous
  Country: US (occurrence: US)
  Receive Date: 20180508
  Receipt Date: 20180508
  Transmission Date: 20180711
  Serious: Yes (Other)
  Sender: FDA-Public Use
  Company Number: US-MYLANLABS-2018M1029731

PATIENT
  Age: 7 Decade
  Sex: Male

DRUGS (1)
  1. PANTOPRAZOLE [Suspect]
     Active Substance: PANTOPRAZOLE
     Indication: PRODUCT USED FOR UNKNOWN INDICATION
     Route: 065

REACTIONS (3)
  - Malnutrition [Recovered/Resolved]
  - Gastrointestinal bacterial overgrowth [Recovered/Resolved]
  - Alpha haemolytic streptococcal infection [Recovered/Resolved]
